FAERS Safety Report 20662692 (Version 3)
Quarter: 2022Q3

REPORT INFORMATION
  Report Type: Spontaneous
  Country: ES (occurrence: ES)
  Receive Date: 20220401
  Receipt Date: 20220908
  Transmission Date: 20221026
  Serious: Yes (Other)
  Sender: FDA-Public Use
  Company Number: ES-SANOFI-01036899

PATIENT
  Age: 36 Year
  Sex: Female

DRUGS (3)
  1. DUPIXENT [Suspect]
     Active Substance: DUPILUMAB
     Indication: Dermatitis atopic
     Dosage: 300 MG, Q15D
     Dates: start: 202201
  2. DUPIXENT [Suspect]
     Active Substance: DUPILUMAB
     Dosage: 300 MG, QM
     Route: 058
  3. DUPIXENT [Suspect]
     Active Substance: DUPILUMAB
     Dosage: UNK
     Dates: start: 20220202, end: 20220810

REACTIONS (14)
  - Pneumonia [Unknown]
  - Blindness [Unknown]
  - Chest discomfort [Unknown]
  - Fatigue [Recovering/Resolving]
  - Malaise [Unknown]
  - Dyspnoea [Unknown]
  - Pain [Recovering/Resolving]
  - Chest discomfort [Recovering/Resolving]
  - Hypotension [Unknown]
  - Syncope [Unknown]
  - Pulmonary pain [Unknown]
  - Pruritus [Recovered/Resolved]
  - Dermatitis atopic [Recovering/Resolving]
  - Arthralgia [Recovering/Resolving]

NARRATIVE: CASE EVENT DATE: 20220101
